FAERS Safety Report 15638572 (Version 1)
Quarter: 2018Q4

REPORT INFORMATION
  Report Type: Spontaneous
  Country: PR (occurrence: PR)
  Receive Date: 20181120
  Receipt Date: 20181120
  Transmission Date: 20190205
  Serious: No
  Sender: FDA-Public Use
  Company Number: PR-JNJFOC-20180203356

PATIENT
  Sex: Female
  Weight: 65 kg

DRUGS (4)
  1. TENORMIN [Concomitant]
     Active Substance: ATENOLOL
  2. IMBRUVICA [Suspect]
     Active Substance: IBRUTINIB
     Indication: MARGINAL ZONE LYMPHOMA
     Route: 048
     Dates: start: 20171206
  3. COZAAR [Concomitant]
     Active Substance: LOSARTAN POTASSIUM
  4. LORAZEPAM. [Concomitant]
     Active Substance: LORAZEPAM

REACTIONS (3)
  - Cough [Unknown]
  - Feeding disorder [Unknown]
  - Rash macular [Unknown]
